FAERS Safety Report 7408045-4 (Version None)
Quarter: 2011Q2

REPORT INFORMATION
  Report Type: 
  Country: None (occurrence: None)
  Receive Date: 20110408
  Receipt Date: 20110408
  Transmission Date: 20111010
  Serious: Yes (Other)
  Sender: FDA-Public Use
  Company Number: None

PATIENT
  Sex: Female
  Weight: 95.709 kg

DRUGS (2)
  1. OPANA ER [Suspect]
     Indication: SPINAL FUSION SURGERY
     Dosage: 20MG DAILY P.O.
     Route: 048
  2. AVINZA [Suspect]
     Indication: INTERVERTEBRAL DISC DEGENERATION
     Dosage: 60MG DAILY P.O.
     Route: 048
     Dates: start: 20060101, end: 20070101

REACTIONS (5)
  - SKIN IRRITATION [None]
  - GASTROINTESTINAL DISORDER [None]
  - DRUG INTOLERANCE [None]
  - HEADACHE [None]
  - HYPERHIDROSIS [None]
